FAERS Safety Report 5063973-2 (Version None)
Quarter: 2006Q3

REPORT INFORMATION
  Report Type: 
  Country: None (occurrence: None)
  Receive Date: 20060703
  Receipt Date: 20051011
  Transmission Date: 20061208
  Serious: No
  Sender: FDA-Public Use
  Company Number: 2005S1010200

PATIENT
  Age: 54 Year
  Sex: Male
  Weight: 119.296 kg

DRUGS (2)
  1. CLOZAPINE [Suspect]
     Indication: SCHIZOPHRENIA, RESIDUAL TYPE
     Dosage: 400 MG;HS;PO
     Route: 048
     Dates: start: 20050105
  2. ESCITALOPRAM [Concomitant]

REACTIONS (1)
  - LEUKOPENIA [None]
